FAERS Safety Report 21629246 (Version 2)
Quarter: 2023Q1

REPORT INFORMATION
  Report Type: Spontaneous
  Country: US (occurrence: US)
  Receive Date: 20221122
  Receipt Date: 20230222
  Transmission Date: 20230417
  Serious: No
  Sender: FDA-Public Use
  Company Number: US-PARI RESPIRATORY EQUIPMENT, INC.-2022PAR00070

PATIENT
  Sex: Female
  Weight: 51.61 kg

DRUGS (12)
  1. KITABIS PAK [Suspect]
     Active Substance: TOBRAMYCIN
     Indication: Cystic fibrosis
     Dosage: 1 AMPULE (300 MG) VIA NEBULIZER, 2X/DAY ALTERNATING 28 DAYS ON 28 DAYS OFF
     Dates: start: 2022, end: 2022
  2. KITABIS PAK [Suspect]
     Active Substance: TOBRAMYCIN
     Indication: Pneumonia pseudomonal
     Dosage: 300 MG VIA NEBULIZER, 2X/DAY FOR 28 DAYS ON 28 DAYS OFF
     Dates: start: 20230201
  3. PULMOZYME [Concomitant]
     Active Substance: DORNASE ALFA
  4. AMOXICILLIN [Concomitant]
     Active Substance: AMOXICILLIN
  5. ALBUTEROL SULFATE [Concomitant]
     Active Substance: ALBUTEROL SULFATE
  6. FLOVENT HFA [Concomitant]
     Active Substance: FLUTICASONE PROPIONATE
  7. AZITHROMYCIN [Concomitant]
     Active Substance: AZITHROMYCIN
  8. VITAMIN D NOS [Concomitant]
     Active Substance: VITAMIN D NOS
  9. VITAMINS [Concomitant]
     Active Substance: VITAMINS
  10. CREON [Concomitant]
     Active Substance: PANCRELIPASE AMYLASE\PANCRELIPASE LIPASE\PANCRELIPASE PROTEASE
  11. UNSPECIFIED ANTIBITOICS [Concomitant]
  12. TOBRAMYCIN SULFATE [Concomitant]
     Active Substance: TOBRAMYCIN SULFATE

REACTIONS (1)
  - No adverse event [Recovered/Resolved]

NARRATIVE: CASE EVENT DATE: 20220101
